FAERS Safety Report 10153010 (Version 1)
Quarter: 2014Q2

REPORT INFORMATION
  Report Type: Spontaneous
  Country: FR (occurrence: FR)
  Receive Date: 20140505
  Receipt Date: 20140505
  Transmission Date: 20141212
  Serious: Yes (Hospitalization, Other)
  Sender: FDA-Public Use
  Company Number: FR-PFIZER INC-2014120310

PATIENT
  Age: 78 Year
  Sex: Female

DRUGS (9)
  1. LYRICA [Suspect]
     Indication: NEURALGIA
     Dosage: 75 MG MORNING AND 100 MG EVENING
     Route: 048
     Dates: end: 20131206
  2. ALDACTONE [Suspect]
     Dosage: 50 MG, 1X/DAY (1 TABLET MORNING)
     Route: 048
     Dates: end: 20131206
  3. CIFLOX [Suspect]
     Indication: URINARY TRACT INFECTION
     Dosage: UNK
     Route: 048
     Dates: start: 201312, end: 20131206
  4. LEVOTHYROX [Concomitant]
     Indication: HYPOTHYROIDISM
     Dosage: 125 UG, 1X/DAY (1 TABLET MORNING)
     Route: 048
  5. CARTEOL [Concomitant]
     Indication: GLAUCOMA
     Dosage: 1 GTT, 1X/DAY (1 DROP ONCE DAILY IN LEFT EYE (MORNING))
     Route: 047
  6. DELURSAN [Concomitant]
     Indication: HEPATIC CIRRHOSIS
     Dosage: 500 MG, 2X/DAY (MORNING AND EVENING)
     Route: 048
  7. LEVEMIR [Concomitant]
     Indication: TYPE 2 DIABETES MELLITUS
     Dosage: 32 IU, 1X/DAY
     Route: 058
  8. LASILIX [Concomitant]
     Dosage: 40 MG, 1X/DAY (1 TABLET MORNING)
     Route: 048
  9. HYDROCORTISONE [Concomitant]
     Dosage: 30 MG DAILY (2 TABLETS MORNING AND 1 TABLET NOON)
     Route: 048

REACTIONS (5)
  - Renal failure acute [Recovered/Resolved]
  - Hypochromic anaemia [Unknown]
  - Anaemia macrocytic [Unknown]
  - Vomiting [Unknown]
  - Dehydration [Unknown]
